FAERS Safety Report 14575028 (Version 1)
Quarter: 2018Q1

REPORT INFORMATION
  Report Type: Spontaneous
  Country: US (occurrence: US)
  Receive Date: 20180227
  Receipt Date: 20180227
  Transmission Date: 20180509
  Serious: No
  Sender: FDA-Public Use
  Company Number: US-ROCHE-1993303

PATIENT
  Sex: Female

DRUGS (1)
  1. XOLAIR [Suspect]
     Active Substance: OMALIZUMAB
     Indication: CHRONIC SPONTANEOUS URTICARIA
     Dosage: THREE HUNDRED OF OMALIZUMAB ONCE A MONTH
     Route: 058

REACTIONS (3)
  - Skin burning sensation [Unknown]
  - Fatigue [Unknown]
  - Nausea [Unknown]
